FAERS Safety Report 8809231 (Version 2)
Quarter: 2012Q4

REPORT INFORMATION
  Report Type: 
  Country: KR (occurrence: KR)
  Receive Date: 20120926
  Receipt Date: 20121019
  Transmission Date: 20130627
  Serious: Yes (Other)
  Sender: FDA-Public Use
  Company Number: KR-ELI_LILLY_AND_COMPANY-KR201209004335

PATIENT
  Age: 45 Year
  Sex: Female
  Weight: 61 kg

DRUGS (5)
  1. BYETTA [Suspect]
     Indication: TYPE 2 DIABETES MELLITUS
     Dosage: 5 ug, bid
     Dates: start: 20120727, end: 20120829
  2. BYETTA [Suspect]
     Dosage: 10 ug, bid
     Dates: start: 20120830
  3. DRUG USED IN DIABETES [Concomitant]
     Indication: TYPE 2 DIABETES MELLITUS
  4. SYNTHROID [Concomitant]
     Indication: THYROID DISORDER
  5. COUMADIN [Concomitant]
     Indication: CARDIAC DISORDER

REACTIONS (1)
  - Arrhythmia [Recovered/Resolved]
